FAERS Safety Report 15863281 (Version 1)
Quarter: 2019Q1

REPORT INFORMATION
  Report Type: Spontaneous
  Country: US (occurrence: US)
  Receive Date: 20190124
  Receipt Date: 20190124
  Transmission Date: 20190417
  Serious: Yes (Life-Threatening, Other)
  Sender: FDA-Public Use
  Company Number: US-BAYER-2019-015580

PATIENT
  Age: 71 Year
  Sex: Female

DRUGS (10)
  1. ACETYLSALICYLIC ACID({=100 MG) [Suspect]
     Active Substance: ASPIRIN
     Indication: ANTIPLATELET THERAPY
  2. RED BLOOD CELLS, CONCENTRATED [Concomitant]
     Active Substance: HUMAN RED BLOOD CELL
     Dosage: 2 U
     Route: 042
  3. CRYOPRECIPITATE [Concomitant]
     Active Substance: CRYOPRECIPITATED ANTIHEMOPHILIC FACTOR (HUMAN)
     Dosage: 1 U
     Route: 042
  4. PLATELETS [Concomitant]
     Active Substance: HUMAN PLATELET, ALLOGENIC
     Dosage: 1 U
     Route: 042
  5. MILRINONE [Concomitant]
     Active Substance: MILRINONE
     Dosage: UNK
     Route: 042
  6. AMIODARONE [Concomitant]
     Active Substance: AMIODARONE
     Indication: ATRIAL FIBRILLATION
  7. CLOPIDOGREL [Suspect]
     Active Substance: CLOPIDOGREL BISULFATE
     Indication: ANTIPLATELET THERAPY
  8. EPINEPHRINE. [Concomitant]
     Active Substance: EPINEPHRINE
     Route: 042
  9. PLASMA [Concomitant]
     Active Substance: HUMAN PLASMA
     Dosage: 1 U
     Route: 042
  10. RINGERS SOLUTION [Concomitant]
     Active Substance: CALCIUM CHLORIDE\POTASSIUM CHLORIDE\SODIUM CHLORIDE
     Dosage: 2 L
     Route: 040

REACTIONS (5)
  - Left-to-right cardiac shunt [Recovered/Resolved]
  - Pericardial effusion [None]
  - Cardiac tamponade [Recovered/Resolved]
  - Pericardial haemorrhage [Recovered/Resolved]
  - Obstructive shock [Recovered/Resolved]
